FAERS Safety Report 10760151 (Version 1)
Quarter: 2015Q1

REPORT INFORMATION
  Report Type: Report from Study
  Country: US (occurrence: US)
  Receive Date: 20150204
  Receipt Date: 20150204
  Transmission Date: 20150721
  Serious: Yes (Other)
  Sender: FDA-Public Use
  Company Number: PHEH2014US025940

PATIENT
  Sex: Female

DRUGS (8)
  1. CHOLESTYRAMINE. [Concomitant]
     Active Substance: CHOLESTYRAMINE
     Indication: PRODUCT USED FOR UNKNOWN INDICATION
     Route: 065
  2. CLOTRIMAZOLE AND BETAMETHASONE [Concomitant]
     Indication: PRODUCT USED FOR UNKNOWN INDICATION
     Route: 065
  3. GILENYA [Suspect]
     Active Substance: FINGOLIMOD HYDROCHLORIDE
     Indication: MULTIPLE SCLEROSIS
     Dosage: 0.5 MG, QD
     Route: 048
     Dates: end: 201411
  4. KLONOPIN [Concomitant]
     Active Substance: CLONAZEPAM
     Indication: PRODUCT USED FOR UNKNOWN INDICATION
     Route: 065
  5. CEFALEXIN [Concomitant]
     Active Substance: CEPHALEXIN
     Indication: PRODUCT USED FOR UNKNOWN INDICATION
     Route: 065
  6. LAMICTAL [Concomitant]
     Active Substance: LAMOTRIGINE
     Indication: PRODUCT USED FOR UNKNOWN INDICATION
     Route: 065
  7. PARNATE [Concomitant]
     Active Substance: TRANYLCYPROMINE SULFATE
     Indication: PRODUCT USED FOR UNKNOWN INDICATION
     Route: 065
  8. AZITHROMYCIN [Concomitant]
     Active Substance: AZITHROMYCIN ANHYDROUS
     Indication: PRODUCT USED FOR UNKNOWN INDICATION
     Route: 065

REACTIONS (38)
  - Balance disorder [Unknown]
  - Clumsiness [Unknown]
  - Palpitations [Unknown]
  - Deafness [Unknown]
  - Urinary hesitation [Unknown]
  - Pain in extremity [Unknown]
  - Fatigue [Unknown]
  - Oedema [Unknown]
  - Musculoskeletal stiffness [Unknown]
  - Hypoaesthesia [Unknown]
  - Gait disturbance [Unknown]
  - Eye pain [Unknown]
  - Diarrhoea [Unknown]
  - Vitreous floaters [Unknown]
  - Chest pain [Unknown]
  - Lymphocyte count decreased [Unknown]
  - Depression [Unknown]
  - Memory impairment [Unknown]
  - Nasal congestion [Unknown]
  - Migraine [Unknown]
  - Paraesthesia [Unknown]
  - Temperature intolerance [Unknown]
  - Rhinorrhoea [Unknown]
  - Heart rate irregular [Unknown]
  - Abdominal pain [Unknown]
  - Anxiety [Unknown]
  - Cognitive disorder [Unknown]
  - Upper-airway cough syndrome [Unknown]
  - Snoring [Unknown]
  - Muscle spasms [Unknown]
  - Nausea [Unknown]
  - Back pain [Unknown]
  - Cough [Unknown]
  - Constipation [Unknown]
  - Confusional state [Unknown]
  - Tandem gait test abnormal [Unknown]
  - Hypertension [Recovered/Resolved]
  - Urinary retention [Unknown]
